FAERS Safety Report 21396214 (Version 1)
Quarter: 2022Q3

REPORT INFORMATION
  Report Type: Spontaneous
  Country: US (occurrence: None)
  Receive Date: 20220928
  Receipt Date: 20220928
  Transmission Date: 20221026
  Serious: Yes (Other)
  Sender: FDA-Public Use
  Company Number: None

PATIENT
  Age: 69 Year
  Sex: Female

DRUGS (16)
  1. AMBRISENTAN [Suspect]
     Active Substance: AMBRISENTAN
     Indication: Pulmonary hypertension
     Dosage: FREQUENCY : DAILY;?
     Route: 048
     Dates: start: 20170411
  2. TADALAFIL [Concomitant]
     Active Substance: TADALAFIL
  3. TREPROSTINIL [Concomitant]
     Active Substance: TREPROSTINIL
  4. FUROSEMIDE [Concomitant]
     Active Substance: FUROSEMIDE
  5. CLIMARA [Concomitant]
     Active Substance: ESTRADIOL
  6. HYDROMORPHONE [Concomitant]
     Active Substance: HYDROMORPHONE
  7. IBUPROFEN [Concomitant]
     Active Substance: IBUPROFEN
  8. TAMSULOSIN [Concomitant]
     Active Substance: TAMSULOSIN
  9. ONDANSETRON [Concomitant]
     Active Substance: ONDANSETRON
  10. FAMOTIDINE [Concomitant]
     Active Substance: FAMOTIDINE
  11. ACETAMINOPHEN [Concomitant]
     Active Substance: ACETAMINOPHEN
  12. CLEARLAX [Concomitant]
     Active Substance: POLYETHYLENE GLYCOL 3350
  13. SUMATRIPTAN [Concomitant]
     Active Substance: SUMATRIPTAN
  14. FLONASE [Concomitant]
     Active Substance: FLUTICASONE PROPIONATE
  15. TRAZODONE [Concomitant]
     Active Substance: TRAZODONE HYDROCHLORIDE
  16. VITAMIN D3 [Concomitant]
     Active Substance: CHOLECALCIFEROL

REACTIONS (1)
  - Ureterolithiasis [None]

NARRATIVE: CASE EVENT DATE: 20220918
